FAERS Safety Report 12068442 (Version 1)
Quarter: 2016Q1

REPORT INFORMATION
  Report Type: Spontaneous
  Country: US (occurrence: US)
  Receive Date: 20160211
  Receipt Date: 20160211
  Transmission Date: 20160526
  Serious: Yes (Congenital Anomaly, Other)
  Sender: FDA-Public Use
  Company Number: US-APOTEX-2016AP006446

PATIENT
  Age: 1 Day
  Sex: Female
  Weight: 4 kg

DRUGS (2)
  1. PAXIL [Suspect]
     Active Substance: PAROXETINE HYDROCHLORIDE
     Indication: DEPRESSION
     Dosage: UNK
     Route: 064
     Dates: start: 20010611, end: 2002
  2. PAXIL [Suspect]
     Active Substance: PAROXETINE HYDROCHLORIDE
     Dosage: UNK
     Route: 064
     Dates: start: 20010815

REACTIONS (7)
  - Left ventricular hypertrophy [Unknown]
  - Transient tachypnoea of the newborn [Unknown]
  - Cardiac murmur [Unknown]
  - ABO haemolytic disease of newborn [Unknown]
  - Emphysema [Unknown]
  - Foetal exposure during pregnancy [Unknown]
  - Pneumothorax [Unknown]

NARRATIVE: CASE EVENT DATE: 20020221
